FAERS Safety Report 5367251-3 (Version None)
Quarter: 2007Q2

REPORT INFORMATION
  Report Type: 
  Country: None (occurrence: None)
  Receive Date: 20070620
  Receipt Date: 20070620
  Transmission Date: 20071010
  Serious: Yes (Hospitalization, Other)
  Sender: FDA-Public Use
  Company Number: None

PATIENT
  Sex: Female
  Weight: 72.5755 kg

DRUGS (2)
  1. CITANEST PLAIN [Suspect]
     Indication: DENTAL CARIES
     Dosage: ~0.45CC CITRANEST 4% PLAIN
     Dates: start: 20060720
  2. CITANEST PLAIN [Suspect]
     Indication: DENTAL CARIES
     Dosage: ~0.45CC CITRANEST 4% PLAIN
     Dates: start: 20061005

REACTIONS (3)
  - ADVERSE DRUG REACTION [None]
  - POST PROCEDURAL COMPLICATION [None]
  - SWELLING FACE [None]
